FAERS Safety Report 7250501-6 (Version None)
Quarter: 2011Q1

REPORT INFORMATION
  Report Type: 
  Country: None (occurrence: None)
  Receive Date: 20110121
  Receipt Date: 20110121
  Transmission Date: 20110831
  Serious: Yes (Death, Life-Threatening, Hospitalization)
  Sender: FDA-Public Use
  Company Number: None

PATIENT
  Sex: Female
  Weight: 68.0396 kg

DRUGS (1)
  1. PRADAXA [Suspect]
     Indication: HEART RATE IRREGULAR
     Dates: start: 20101025, end: 20101124

REACTIONS (1)
  - SMALL INTESTINAL HAEMORRHAGE [None]
